FAERS Safety Report 11866961 (Version 1)
Quarter: 2015Q4

REPORT INFORMATION
  Report Type: Spontaneous
  Country: US (occurrence: None)
  Receive Date: 20151223
  Receipt Date: 20151223
  Transmission Date: 20160305
  Serious: Yes (Hospitalization)
  Sender: FDA-Public Use
  Company Number: None

PATIENT
  Age: 58 Year
  Sex: Female
  Weight: 75.66 kg

DRUGS (1)
  1. TAXOTERE [Suspect]
     Active Substance: DOCETAXEL
     Dates: end: 20151214

REACTIONS (4)
  - Hypophagia [None]
  - Nausea [None]
  - Toxicity to various agents [None]
  - Vomiting [None]

NARRATIVE: CASE EVENT DATE: 20151216
